FAERS Safety Report 7814779-X (Version None)
Quarter: 2011Q4

REPORT INFORMATION
  Report Type: 
  Country: None (occurrence: None)
  Receive Date: 20111013
  Receipt Date: 20111013
  Transmission Date: 20120403
  Serious: Yes (Other)
  Sender: FDA-Public Use
  Company Number: None

PATIENT
  Sex: Male

DRUGS (1)
  1. REMICADE [Suspect]
     Dosage: 500 MG 0,2,5 IV
     Route: 042
     Dates: start: 20110815, end: 20110930

REACTIONS (3)
  - ABASIA [None]
  - GAIT DISTURBANCE [None]
  - DIZZINESS [None]
